FAERS Safety Report 10258357 (Version 2)
Quarter: 2014Q4

REPORT INFORMATION
  Report Type: Spontaneous
  Country: SE (occurrence: SE)
  Receive Date: 20140625
  Receipt Date: 20141212
  Transmission Date: 20150528
  Serious: Yes (Hospitalization, Other)
  Sender: FDA-Public Use
  Company Number: SE-PFIZER INC-2014169614

PATIENT
  Age: 48 Year
  Sex: Female

DRUGS (2)
  1. XANOR [Suspect]
     Active Substance: ALPRAZOLAM
     Dosage: UNK, EVERY OTHER DAY
  2. SEROQUEL [Suspect]
     Active Substance: QUETIAPINE FUMARATE
     Dosage: UNK

REACTIONS (4)
  - Toxicity to various agents [Unknown]
  - Loss of consciousness [Recovered/Resolved]
  - Blood pressure decreased [Unknown]
  - Intentional self-injury [Unknown]

NARRATIVE: CASE EVENT DATE: 20140520
